FAERS Safety Report 21186211 (Version 3)
Quarter: 2022Q3

REPORT INFORMATION
  Report Type: Report from Study
  Country: NL (occurrence: NL)
  Receive Date: 20220808
  Receipt Date: 20220812
  Transmission Date: 20221027
  Serious: Yes (Death)
  Sender: FDA-Public Use
  Company Number: NL-VER-202200092

PATIENT
  Age: 83 Year
  Sex: Male

DRUGS (1)
  1. TRIPTORELIN PAMOATE [Suspect]
     Active Substance: TRIPTORELIN PAMOATE
     Indication: Prostate cancer
     Dosage: DRUG START DATE:15-FEB-2022
     Route: 030

REACTIONS (2)
  - Metastases to bone [Fatal]
  - Metastases to lung [Fatal]

NARRATIVE: CASE EVENT DATE: 20220101
